FAERS Safety Report 25312148 (Version 3)
Quarter: 2025Q2

REPORT INFORMATION
  Report Type: Spontaneous
  Country: US (occurrence: US)
  Receive Date: 20250510
  Receipt Date: 20250605
  Transmission Date: 20250717
  Serious: Yes (Hospitalization, Other)
  Sender: NOVO NORDISK
  Company Number: US-NOVOPROD-1413032

PATIENT
  Age: 71 Year
  Sex: Female

DRUGS (3)
  1. OZEMPIC [Suspect]
     Active Substance: SEMAGLUTIDE
     Indication: Glycosylated haemoglobin increased
     Dosage: 1 MG, QW
     Route: 058
     Dates: end: 202303
  2. OZEMPIC [Suspect]
     Active Substance: SEMAGLUTIDE
     Dosage: 1 MG, QW
     Dates: start: 2023
  3. METFORMIN [Concomitant]
     Active Substance: METFORMIN HYDROCHLORIDE
     Indication: Product used for unknown indication

REACTIONS (6)
  - Cardiac failure congestive [Recovering/Resolving]
  - Cardiac operation [Recovering/Resolving]
  - Ventricular assist device insertion [Recovering/Resolving]
  - COVID-19 [Unknown]
  - COVID-19 [Unknown]
  - Keloid scar [Unknown]

NARRATIVE: CASE EVENT DATE: 20210101
